FAERS Safety Report 12111498 (Version 1)
Quarter: 2016Q1

REPORT INFORMATION
  Report Type: Spontaneous
  Country: US (occurrence: US)
  Receive Date: 20160224
  Receipt Date: 20160224
  Transmission Date: 20160526
  Serious: Yes (Other)
  Sender: FDA-Public Use
  Company Number: US-JAZZ-2015-US-012746

PATIENT
  Age: 47 Year
  Sex: Female

DRUGS (3)
  1. PRIALT [Suspect]
     Active Substance: ZICONOTIDE ACETATE
     Indication: SPINAL OSTEOARTHRITIS
     Dosage: 0.383 ?G, QH
     Route: 037
     Dates: start: 20150716, end: 20150909
  2. PRIALT [Suspect]
     Active Substance: ZICONOTIDE ACETATE
     Indication: SCOLIOSIS
     Dosage: 0.229 ?G, QH
     Route: 037
     Dates: start: 20150909
  3. PRIALT [Suspect]
     Active Substance: ZICONOTIDE ACETATE
     Indication: POST LAMINECTOMY SYNDROME

REACTIONS (5)
  - Pain [Recovered/Resolved]
  - Suicidal ideation [Recovered/Resolved]
  - Agitation [Recovered/Resolved]
  - Musculoskeletal stiffness [Recovered/Resolved]
  - Muscle spasms [Recovered/Resolved]

NARRATIVE: CASE EVENT DATE: 20150823
